FAERS Safety Report 17501166 (Version 4)
Quarter: 2020Q3

REPORT INFORMATION
  Report Type: Report from Study
  Country: US (occurrence: US)
  Receive Date: 20200305
  Receipt Date: 20200725
  Transmission Date: 20201102
  Serious: No
  Sender: FDA-Public Use
  Company Number: NVSC2020US060666

PATIENT
  Age: 66 Year
  Sex: Female

DRUGS (1)
  1. COSENTYX [Suspect]
     Active Substance: SECUKINUMAB
     Indication: PSORIASIS
     Dosage: 300 MG, ONE SINGLE DOSE
     Route: 058
     Dates: start: 20200227, end: 20200227

REACTIONS (7)
  - Rash [Recovering/Resolving]
  - Vertigo [Recovering/Resolving]
  - Nausea [Unknown]
  - Hypersensitivity [Recovering/Resolving]
  - Dizziness [Unknown]
  - Skin exfoliation [Recovering/Resolving]
  - Vomiting [Recovering/Resolving]

NARRATIVE: CASE EVENT DATE: 20200227
